FAERS Safety Report 9166452 (Version 1)
Quarter: 2013Q1

REPORT INFORMATION
  Report Type: Spontaneous
  Country: IN (occurrence: IN)
  Receive Date: 20130315
  Receipt Date: 20130315
  Transmission Date: 20140127
  Serious: Yes (Hospitalization)
  Sender: FDA-Public Use
  Company Number: IN-MYLANLABS-2013S1005002

PATIENT
  Age: 15 Year
  Sex: Male
  Weight: 30 kg

DRUGS (3)
  1. VALPROIC ACID [Suspect]
     Indication: EPILEPSY
     Dosage: 2400MG DAILY (80 MG/KG)
     Route: 065
  2. PHENYTOIN [Suspect]
     Indication: EPILEPSY
     Dosage: 200MG DAILY (7 MG/KG)
     Route: 065
  3. CLONAZEPAM [Concomitant]
     Dosage: 0.5MG DAILY
     Route: 065

REACTIONS (3)
  - Haematoma [Recovering/Resolving]
  - Toxicity to various agents [Recovering/Resolving]
  - Coagulopathy [Unknown]
